FAERS Safety Report 7128909-9 (Version None)
Quarter: 2010Q4

REPORT INFORMATION
  Report Type: 
  Country: None (occurrence: None)
  Receive Date: 20101130
  Receipt Date: 20101123
  Transmission Date: 20110411
  Serious: Yes (Other)
  Sender: FDA-Public Use
  Company Number: A0894696A

PATIENT
  Age: 67 Year
  Sex: Male

DRUGS (2)
  1. ADVAIR DISKUS 100/50 [Suspect]
     Indication: BRONCHITIS
     Dosage: 3PUFF SINGLE DOSE
     Route: 055
     Dates: start: 20071201, end: 20071201
  2. NO CONCURRENT MEDICATION [Concomitant]

REACTIONS (4)
  - ATRIAL FIBRILLATION [None]
  - CARDIAC ARREST [None]
  - CARDIAC FLUTTER [None]
  - OVERDOSE [None]
